FAERS Safety Report 5401435-0 (Version None)
Quarter: 2007Q3

REPORT INFORMATION
  Report Type: 
  Country: None (occurrence: None)
  Receive Date: 20070726
  Receipt Date: 20070709
  Transmission Date: 20080115
  Serious: Yes (Hospitalization, Other)
  Sender: FDA-Public Use
  Company Number: 2007JP003302

PATIENT
  Age: 57 Year
  Sex: Male

DRUGS (8)
  1. PROGRAF [Suspect]
     Indication: LUNG TRANSPLANT
  2. PREDNISOLONE [Suspect]
     Indication: LUNG TRANSPLANT
  3. AZATHIOPRINE [Suspect]
     Indication: LUNG TRANSPLANT
  4. STREPTOKINASE (STREPTOKINASE) INJECTION [Concomitant]
  5. CASPOFUNGIN ACETATE (CASPOFUNGIN ACETATE) [Concomitant]
  6. AMPHOTERICIN B [Concomitant]
  7. VORICONAZOLE (VORICONAZOLE) [Concomitant]
  8. DOPAMINE HCL [Concomitant]

REACTIONS (17)
  - ASPERGILLOMA [None]
  - ASPERGILLOSIS [None]
  - CARDIAC VALVE VEGETATION [None]
  - CARDIOGENIC SHOCK [None]
  - COAGULOPATHY [None]
  - CORONARY ARTERY ANEURYSM [None]
  - CORONARY ARTERY OCCLUSION [None]
  - DILATATION VENTRICULAR [None]
  - EMPYEMA [None]
  - FUNGAL ENDOCARDITIS [None]
  - MITRAL VALVE INCOMPETENCE [None]
  - MYOCARDIAL INFARCTION [None]
  - POST PROCEDURAL COMPLICATION [None]
  - POSTOPERATIVE ADHESION [None]
  - RENAL FAILURE ACUTE [None]
  - RESPIRATORY FAILURE [None]
  - VENTRICULAR HYPOKINESIA [None]
